FAERS Safety Report 8027720-4 (Version None)
Quarter: 2011Q4

REPORT INFORMATION
  Report Type: 
  Country: None (occurrence: None)
  Receive Date: 20111130
  Receipt Date: 20110801
  Transmission Date: 20120403
  Serious: Yes (Other)
  Sender: FDA-Public Use
  Company Number: US201002004006

PATIENT
  Age: 60 Year
  Sex: Female

DRUGS (18)
  1. ESGIC-PLUS (BUTALBITAL, CAFFEINE, PARACETAMOL) [Concomitant]
  2. PREMPRO [Concomitant]
  3. LUNESTA [Concomitant]
  4. LEVOXYL [Concomitant]
  5. XANAX [Concomitant]
  6. PREVACID [Concomitant]
  7. MONOPRIL [Concomitant]
  8. EXENATIDE, DISPOSABLE DEVICE (EXENATIDE PEN,DISPOSABLE [Concomitant]
  9. ALLEGRA [Concomitant]
  10. BYETTA [Suspect]
     Indication: TYPE 2 DIABETES MELLITUS
     Dates: start: 20070707, end: 20080710
  11. LEVOXYL [Concomitant]
  12. PRAVACHOL [Concomitant]
  13. ROZEREM [Concomitant]
  14. CELEBREX [Concomitant]
  15. BONIVA [Concomitant]
  16. ALLEGRA [Concomitant]
  17. EFFEXOR [Concomitant]
  18. PRAVACHOL PREVACID (LANSOPRAZOLE) [Concomitant]

REACTIONS (1)
  - PANCREATITIS [None]
